FAERS Safety Report 10768845 (Version 3)
Quarter: 2015Q2

REPORT INFORMATION
  Report Type: Report from Study
  Country: CA (occurrence: CA)
  Receive Date: 20150206
  Receipt Date: 20150508
  Transmission Date: 20150821
  Serious: Yes (Other)
  Sender: FDA-Public Use
  Company Number: CA-ROCHE-1531055

PATIENT
  Age: 47 Year
  Sex: Female
  Weight: 81.72 kg

DRUGS (8)
  1. CLONAZEPAM. [Concomitant]
     Active Substance: CLONAZEPAM
  2. CARBOCAL D [Concomitant]
     Active Substance: CALCIUM\VITAMIN D
  3. KADCYLA [Suspect]
     Active Substance: ADO-TRASTUZUMAB EMTANSINE
     Indication: BREAST CANCER
     Route: 042
     Dates: start: 20150324
  4. PANTOPRAZOLE [Concomitant]
     Active Substance: PANTOPRAZOLE SODIUM
  5. ZOPICLONE [Concomitant]
     Active Substance: ZOPICLONE
  6. CITALOPRAM [Concomitant]
     Active Substance: CITALOPRAM HYDROBROMIDE
  7. HERCEPTIN [Suspect]
     Active Substance: TRASTUZUMAB
     Indication: BREAST CANCER
     Route: 065
     Dates: start: 20090101
  8. AREDIA [Concomitant]
     Active Substance: PAMIDRONATE DISODIUM

REACTIONS (9)
  - Nausea [Unknown]
  - Spinal disorder [Unknown]
  - Dysarthria [Recovering/Resolving]
  - Depression [Unknown]
  - Nausea [Not Recovered/Not Resolved]
  - Alopecia [Recovering/Resolving]
  - Malignant neoplasm progression [Unknown]
  - Diarrhoea [Not Recovered/Not Resolved]
  - Fatigue [Not Recovered/Not Resolved]

NARRATIVE: CASE EVENT DATE: 2013
